FAERS Safety Report 24283286 (Version 1)
Quarter: 2024Q3

REPORT INFORMATION
  Report Type: Spontaneous
  Country: US (occurrence: None)
  Receive Date: 20240903
  Receipt Date: 20240903
  Transmission Date: 20241016
  Serious: Yes (Hospitalization)
  Sender: Public
  Company Number: None

PATIENT
  Age: 56 Year
  Sex: Male

DRUGS (12)
  1. TACROLIMUS [Suspect]
     Active Substance: TACROLIMUS
     Indication: Heart transplant
     Dosage: FREQUENCY : TWICE A DAY;?
     Route: 048
  2. TACROLIMUS [Suspect]
     Active Substance: TACROLIMUS
     Indication: Renal transplant
  3. MYCOPHENOLIC ACID [Suspect]
     Active Substance: MYCOPHENOLIC ACID
     Dosage: FREQUENCY : TWICE A DAY;?
  4. SUBOXONE [Concomitant]
  5. valgangciclovir [Concomitant]
  6. CLONAZEPAM [Concomitant]
  7. BACTRIM [Concomitant]
  8. CRESTOR [Concomitant]
  9. MELATONIN [Concomitant]
  10. OMEPRAZOLE [Concomitant]
  11. PREDNISONE [Concomitant]
  12. BELSOMRA [Concomitant]

REACTIONS (2)
  - Diarrhoea [None]
  - Kidney infection [None]

NARRATIVE: CASE EVENT DATE: 20240825
